FAERS Safety Report 8991463 (Version 3)
Quarter: 2013Q1

REPORT INFORMATION
  Report Type: Spontaneous
  Country: US (occurrence: US)
  Receive Date: 20121231
  Receipt Date: 20130201
  Transmission Date: 20140127
  Serious: Yes (Death, Other)
  Sender: FDA-Public Use
  Company Number: US-BIOGENIDEC-2012BI063727

PATIENT
  Age: 56 Year
  Sex: Male

DRUGS (1)
  1. TYSABRI [Suspect]
     Indication: MULTIPLE SCLEROSIS
     Route: 042
     Dates: start: 20091124, end: 20120514

REACTIONS (4)
  - Completed suicide [Fatal]
  - Exsanguination [Fatal]
  - Throat cancer [Not Recovered/Not Resolved]
  - Head and neck cancer [Not Recovered/Not Resolved]
